FAERS Safety Report 9827478 (Version 1)
Quarter: 2014Q1

REPORT INFORMATION
  Report Type: Spontaneous
  Country: US (occurrence: None)
  Receive Date: 20140116
  Receipt Date: 20140116
  Transmission Date: 20141002
  Serious: Yes (Other)
  Sender: FDA-Public Use
  Company Number: None

PATIENT
  Age: 63 Year
  Sex: Female
  Weight: 77.11 kg

DRUGS (9)
  1. LATANOPROST [Suspect]
     Indication: GLAUCOMA
     Dosage: 2.5 ML?ONE DROP ?AT BEDTIME ?ONE DROP IN BOTH EYES
     Dates: start: 20130705, end: 20130706
  2. BRIMONIDINE [Suspect]
     Indication: GLAUCOMA
     Dosage: 5 ML ?2 TIME DAILY?MORNING + EVENING?ONE DROP IN BOTH EYES
     Dates: start: 20130705, end: 20130706
  3. HYDROCHOROTHIAZIDE [Concomitant]
  4. AMITRIPLYTINE [Concomitant]
  5. XALATAN [Concomitant]
  6. LATANOPROST [Concomitant]
  7. MULTIVITAMINS [Concomitant]
  8. OMEGA-3 [Concomitant]
  9. VITAMIN -A [Concomitant]

REACTIONS (6)
  - Eye swelling [None]
  - Ocular hyperaemia [None]
  - Vision blurred [None]
  - Foreign body sensation in eyes [None]
  - Eye irritation [None]
  - Visual acuity reduced [None]
